FAERS Safety Report 17088528 (Version 2)
Quarter: 2019Q4

REPORT INFORMATION
  Report Type: Spontaneous
  Country: IT (occurrence: IT)
  Receive Date: 20191128
  Receipt Date: 20191205
  Transmission Date: 20200122
  Serious: Yes (Hospitalization, Other)
  Sender: FDA-Public Use
  Company Number: NVSC2019IT047942

PATIENT
  Age: 17 Year
  Sex: Female
  Weight: 42 kg

DRUGS (1)
  1. ADALIMUMAB [Suspect]
     Active Substance: ADALIMUMAB
     Indication: PSORIASIS
     Dosage: 40 MG, CYCLIC
     Route: 058
     Dates: start: 20190328, end: 20190905

REACTIONS (5)
  - Oropharyngeal pain [Unknown]
  - Lymphoma [Unknown]
  - Pyrexia [Unknown]
  - Disseminated tuberculosis [Unknown]
  - Lymphadenopathy [Unknown]

NARRATIVE: CASE EVENT DATE: 20190801
